FAERS Safety Report 24544942 (Version 1)
Quarter: 2024Q4

REPORT INFORMATION
  Report Type: Spontaneous
  Country: US (occurrence: US)
  Receive Date: 20241024
  Receipt Date: 20241024
  Transmission Date: 20250114
  Serious: No
  Sender: PFIZER
  Company Number: US-PFIZER INC-202400284559

PATIENT
  Age: 14 Year
  Sex: Female

DRUGS (2)
  1. XELJANZ [Suspect]
     Active Substance: TOFACITINIB CITRATE
     Dosage: 5 MG, 1 TABLET TWICE A DAY
     Route: 048
     Dates: start: 20240822
  2. IRON/VITAMINS NOS [Concomitant]

REACTIONS (1)
  - Drug ineffective [Not Recovered/Not Resolved]
